FAERS Safety Report 16705808 (Version 1)
Quarter: 2019Q4

REPORT INFORMATION
  Report Type: Spontaneous
  Country: US (occurrence: US)
  Receive Date: 20190814
  Receipt Date: 20190814
  Transmission Date: 20200122
  Serious: Yes (Death)
  Sender: FDA-Public Use
  Company Number: None

PATIENT
  Age: 72 Year
  Sex: Male
  Weight: 84.38 kg

DRUGS (7)
  1. ACYCLOVIR. [Concomitant]
     Active Substance: ACYCLOVIR
  2. AMIODARONE [Concomitant]
     Active Substance: AMIODARONE
  3. DARZALEX [Suspect]
     Active Substance: DARATUMUMAB
     Indication: PLASMA CELL MYELOMA
     Dosage: ?          OTHER FREQUENCY:WEEKLY;?
     Route: 042
     Dates: start: 20190614
  4. MVI [Concomitant]
     Active Substance: VITAMINS
  5. ALLOPURINOL. [Concomitant]
     Active Substance: ALLOPURINOL
  6. CALTRATE [Concomitant]
     Active Substance: CALCIUM CARBONATE
  7. COQ10 [Concomitant]
     Active Substance: UBIDECARENONE

REACTIONS (1)
  - Death [None]

NARRATIVE: CASE EVENT DATE: 20190615
